FAERS Safety Report 11678507 (Version 1)
Quarter: 2015Q4

REPORT INFORMATION
  Report Type: Report from Study
  Country: TR (occurrence: TR)
  Receive Date: 20151028
  Receipt Date: 20151028
  Transmission Date: 20160304
  Serious: Yes (Other)
  Sender: FDA-Public Use
  Company Number: PHHY2015TR136258

PATIENT
  Sex: Female
  Weight: 41 kg

DRUGS (3)
  1. SOMATROPIN [Suspect]
     Active Substance: SOMATROPIN
     Indication: GROWTH HORMONE DEFICIENCY
     Dosage: 1.2 MG, QD (FOR 5 DAYS)
     Route: 058
     Dates: start: 20130910
  2. SOMATROPIN [Suspect]
     Active Substance: SOMATROPIN
     Dosage: 1 MG, QD (FOR 2 DAYS)
     Route: 058
     Dates: end: 20151007
  3. EUTHYROX [Concomitant]
     Active Substance: LEVOTHYROXINE SODIUM
     Indication: THYROID DISORDER
     Dosage: 50 MG, QD
     Route: 065

REACTIONS (2)
  - Myalgia [Not Recovered/Not Resolved]
  - Influenza [Not Recovered/Not Resolved]
